FAERS Safety Report 6290528-4 (Version None)
Quarter: 2009Q3

REPORT INFORMATION
  Report Type: 
  Country: None (occurrence: None)
  Receive Date: 20090730
  Receipt Date: 20080708
  Transmission Date: 20100115
  Serious: Yes (Death, Other)
  Sender: FDA-Public Use
  Company Number: US-BRISTOL-MYERS SQUIBB COMPANY-14253900

PATIENT
  Age: 70 Year
  Sex: Female

DRUGS (2)
  1. COUMADIN [Suspect]
  2. LOVENOX [Suspect]
     Route: 058

REACTIONS (2)
  - HAEMOGLOBIN DECREASED [None]
  - RETROPERITONEAL HAEMORRHAGE [None]
